FAERS Safety Report 19232678 (Version 1)
Quarter: 2021Q2

REPORT INFORMATION
  Report Type: Report from Study
  Country: CA (occurrence: CA)
  Receive Date: 20210507
  Receipt Date: 20210507
  Transmission Date: 20210717
  Serious: Yes (Hospitalization, Other)
  Sender: FDA-Public Use
  Company Number: CA-AMGEN-CANSL2021068402

PATIENT
  Age: 80 Year
  Sex: Female

DRUGS (2)
  1. XARELTO [Concomitant]
     Active Substance: RIVAROXABAN
     Dosage: UNK
  2. PROLIA [Suspect]
     Active Substance: DENOSUMAB
     Indication: OSTEOPOROSIS POSTMENOPAUSAL
     Dosage: 60 MILLIGRAM PER MILLILITRE
     Route: 065
     Dates: start: 20160126

REACTIONS (5)
  - Joint injury [Recovered/Resolved]
  - Pain in extremity [Unknown]
  - Sepsis [Unknown]
  - Restless legs syndrome [Unknown]
  - Synovial cyst [Unknown]

NARRATIVE: CASE EVENT DATE: 202011
